FAERS Safety Report 6245234-9 (Version None)
Quarter: 2009Q2

REPORT INFORMATION
  Report Type: 
  Country: None (occurrence: None)
  Receive Date: 20090619
  Receipt Date: 20090323
  Transmission Date: 20091009
  Serious: No
  Sender: FDA-Public Use
  Company Number: ALL1-2009-00776

PATIENT
  Age: 10 Year
  Sex: Male
  Weight: 34.5 kg

DRUGS (4)
  1. VYVANSE [Suspect]
     Indication: ATTENTION DEFICIT/HYPERACTIVITY DISORDER
     Dosage: 30 MG. MONDAY : 30 MG, 1X/DAY:QD, ORAL : 20 MG, 1X/DAY:QD, ORAL : (3/4 OF 20 MG. CAPSULE), ORAL
     Route: 048
     Dates: start: 20081101, end: 20081201
  2. VYVANSE [Suspect]
     Indication: ATTENTION DEFICIT/HYPERACTIVITY DISORDER
     Dosage: 30 MG. MONDAY : 30 MG, 1X/DAY:QD, ORAL : 20 MG, 1X/DAY:QD, ORAL : (3/4 OF 20 MG. CAPSULE), ORAL
     Route: 048
     Dates: start: 20081201, end: 20081201
  3. VYVANSE [Suspect]
     Indication: ATTENTION DEFICIT/HYPERACTIVITY DISORDER
     Dosage: 30 MG. MONDAY : 30 MG, 1X/DAY:QD, ORAL : 20 MG, 1X/DAY:QD, ORAL : (3/4 OF 20 MG. CAPSULE), ORAL
     Route: 048
     Dates: start: 20081201, end: 20090201
  4. VYVANSE [Suspect]
     Indication: ATTENTION DEFICIT/HYPERACTIVITY DISORDER
     Dosage: 30 MG. MONDAY : 30 MG, 1X/DAY:QD, ORAL : 20 MG, 1X/DAY:QD, ORAL : (3/4 OF 20 MG. CAPSULE), ORAL
     Route: 048
     Dates: start: 20090201

REACTIONS (6)
  - ANOREXIA [None]
  - DECREASED APPETITE [None]
  - MOOD SWINGS [None]
  - PRODUCT QUALITY ISSUE [None]
  - WEIGHT GAIN POOR [None]
  - WRONG TECHNIQUE IN DRUG USAGE PROCESS [None]
